FAERS Safety Report 10065624 (Version 5)
Quarter: 2014Q2

REPORT INFORMATION
  Report Type: Spontaneous
  Country: US (occurrence: US)
  Receive Date: 20140408
  Receipt Date: 20140612
  Transmission Date: 20141212
  Serious: Yes (Death, Hospitalization)
  Sender: FDA-Public Use
  Company Number: US-PFIZER INC-2014093770

PATIENT
  Age: 83 Year
  Sex: Male
  Weight: 80.73 kg

DRUGS (1)
  1. SUTENT [Suspect]
     Dosage: 50 MG, DAILY FOR 28 DAYS ON AND 14 DAYS OFF

REACTIONS (9)
  - Death [Fatal]
  - Aphagia [Recovering/Resolving]
  - Vomiting [Unknown]
  - Pain [Unknown]
  - Decreased appetite [Unknown]
  - Dysgeusia [Unknown]
  - Back pain [Unknown]
  - Peripheral swelling [Unknown]
  - Muscular weakness [Unknown]
